FAERS Safety Report 12540256 (Version 1)
Quarter: 2016Q3

REPORT INFORMATION
  Report Type: Spontaneous
  Country: US (occurrence: None)
  Receive Date: 20160707
  Receipt Date: 20160707
  Transmission Date: 20161109
  Serious: No
  Sender: FDA-Public Use
  Company Number: None

PATIENT
  Age: 78 Year
  Sex: Male
  Weight: 108.2 kg

DRUGS (1)
  1. HYDROCHLOROTHIAZIDE/OLMESARTAN MEDOXOMIL [Suspect]
     Active Substance: HYDROCHLOROTHIAZIDE\OLMESARTAN MEDOXOMIL
     Indication: HYPERTENSION
     Dosage: 12.5/40 MG EVERY DAY PO
     Route: 048
     Dates: start: 20160413, end: 20160517

REACTIONS (1)
  - Balanoposthitis [None]

NARRATIVE: CASE EVENT DATE: 20160517
